FAERS Safety Report 7339535-0 (Version None)
Quarter: 2011Q1

REPORT INFORMATION
  Report Type: 
  Country: None (occurrence: None)
  Receive Date: 20110308
  Receipt Date: 20110223
  Transmission Date: 20110831
  Serious: Yes (Death, Hospitalization)
  Sender: FDA-Public Use
  Company Number: GR-AMGEN-GRCCT2011010834

PATIENT
  Age: 47 Year
  Sex: Female

DRUGS (18)
  1. PANITUMUMAB [Suspect]
     Indication: COLORECTAL CANCER METASTATIC
     Dosage: 440 MG, Q3WK
     Route: 042
     Dates: start: 20110210, end: 20110210
  2. ZYLORIC [Concomitant]
     Dosage: 100 MG, BID
     Route: 048
     Dates: start: 20110210, end: 20110213
  3. OXALIPLATIN [Suspect]
     Indication: COLORECTAL CANCER METASTATIC
     Dosage: 195 MG, Q3WK
     Route: 042
     Dates: start: 20110210, end: 20110210
  4. DECADRON [Concomitant]
     Dosage: 8 MG, UNK
     Route: 042
     Dates: start: 20110210
  5. DURAGESIC-100 [Concomitant]
     Dosage: 50 MG, QOD
     Route: 062
     Dates: start: 20110204, end: 20110216
  6. CODEINE [Concomitant]
     Dosage: UNK UNK, TID
     Route: 048
     Dates: start: 20110204, end: 20110213
  7. MORPHINE [Concomitant]
     Dosage: 0.1 UNK, UNK
     Dates: start: 20110209, end: 20110221
  8. ZOFRON [Concomitant]
     Dosage: 4 MG, UNK
     Route: 042
     Dates: start: 20110210
  9. SOPA-K [Concomitant]
     Dosage: UNK
     Dates: start: 20110209, end: 20110213
  10. IVOR [Concomitant]
     Dosage: 5000 IU, QD
     Route: 058
     Dates: start: 20110204, end: 20110214
  11. APOTEL [Concomitant]
     Dosage: 1000 MG, QD
     Route: 042
     Dates: start: 20110209
  12. SOLU-CORTEF [Concomitant]
     Dosage: 250 MG, QD
     Dates: start: 20110210
  13. XELODA [Suspect]
     Indication: COLORECTAL CANCER METASTATIC
     Dosage: 1500 MG, Q3WK
     Route: 048
     Dates: start: 20110211, end: 20110212
  14. PRILOSEC [Concomitant]
     Dosage: 10 MG, QD
     Route: 042
     Dates: start: 20110210
  15. PRIMPERAN TAB [Concomitant]
     Dosage: 10 MG, UNK
     Route: 048
     Dates: start: 20110211
  16. FENISTIL [Concomitant]
     Dosage: 4 MG, Q2WK
     Route: 042
     Dates: start: 20110210
  17. DUPHALAC [Concomitant]
     Dosage: 10 ML, BID
     Route: 048
     Dates: start: 20110204, end: 20110212
  18. RELISTOR [Concomitant]
     Dosage: UNK UNK, QD
     Route: 058
     Dates: start: 20100212

REACTIONS (9)
  - NEOPLASM MALIGNANT [None]
  - CONSTIPATION [None]
  - CARDIOPULMONARY FAILURE [None]
  - THROMBOCYTOPENIA [None]
  - THROMBOPHLEBITIS SUPERFICIAL [None]
  - HAEMOPTYSIS [None]
  - DEEP VEIN THROMBOSIS [None]
  - CEREBROVASCULAR ACCIDENT [None]
  - PYREXIA [None]
